FAERS Safety Report 20493871 (Version 1)
Quarter: 2022Q1

REPORT INFORMATION
  Report Type: Spontaneous
  Country: IN (occurrence: IN)
  Receive Date: 20220221
  Receipt Date: 20220221
  Transmission Date: 20220423
  Serious: Yes (Other)
  Sender: FDA-Public Use
  Company Number: IN-SA-2022SA046144

PATIENT
  Age: 14 Year
  Sex: Male

DRUGS (2)
  1. ISONIAZID [Suspect]
     Active Substance: ISONIAZID
     Indication: Tuberculosis
     Dosage: UNK
  2. RIFAMPIN [Suspect]
     Active Substance: RIFAMPIN
     Indication: Tuberculosis
     Dosage: UNK

REACTIONS (14)
  - Lupus nephritis [Unknown]
  - Haematuria [Unknown]
  - Proteinuria [Unknown]
  - Hypocomplementaemia [Unknown]
  - Glomerular filtration rate decreased [Unknown]
  - Arthralgia [Unknown]
  - Oedema peripheral [Unknown]
  - Lupus-like syndrome [Unknown]
  - Periorbital swelling [Unknown]
  - Cutaneous vasculitis [Unknown]
  - Purpura [Unknown]
  - Rash [Unknown]
  - Erythema nodosum [Unknown]
  - Skin lesion [Unknown]
